FAERS Safety Report 21776183 (Version 3)
Quarter: 2023Q1

REPORT INFORMATION
  Report Type: Report from Study
  Country: FR (occurrence: FR)
  Receive Date: 20221226
  Receipt Date: 20230130
  Transmission Date: 20230418
  Serious: Yes (Hospitalization)
  Sender: FDA-Public Use
  Company Number: FR-SA-SAC20221221001470

PATIENT
  Age: 55 Year
  Sex: Male
  Weight: 94 kg

DRUGS (8)
  1. ISATUXIMAB [Suspect]
     Active Substance: ISATUXIMAB
     Indication: Plasma cell myeloma
     Dosage: 940 MG, QW
     Route: 042
     Dates: start: 20221212, end: 20221212
  2. ISATUXIMAB [Suspect]
     Active Substance: ISATUXIMAB
     Dosage: 940 MG, QW
     Route: 042
     Dates: start: 20221205, end: 20221205
  3. CARFILZOMIB [Suspect]
     Active Substance: CARFILZOMIB
     Indication: Plasma cell myeloma
     Dosage: 118 MG, QW
     Route: 042
     Dates: start: 20221212, end: 20221212
  4. CARFILZOMIB [Suspect]
     Active Substance: CARFILZOMIB
     Dosage: 118 MG, QW
     Route: 042
     Dates: start: 20221205, end: 20221205
  5. LENALIDOMIDE [Suspect]
     Active Substance: LENALIDOMIDE
     Indication: Plasma cell myeloma
     Dosage: 25 MG, QD
     Route: 048
     Dates: start: 20221218, end: 20221218
  6. LENALIDOMIDE [Suspect]
     Active Substance: LENALIDOMIDE
     Dosage: 25 MG, QD (DAY 1-21)
     Route: 048
     Dates: start: 20221205, end: 20221205
  7. DEXAMETHASONE [Suspect]
     Active Substance: DEXAMETHASONE
     Indication: Plasma cell myeloma
     Dosage: 40 MG, QW
     Route: 048
     Dates: start: 20221212, end: 20221212
  8. DEXAMETHASONE [Suspect]
     Active Substance: DEXAMETHASONE
     Dosage: 40 MG, QW
     Route: 048
     Dates: start: 20221205, end: 20221205

REACTIONS (1)
  - Lung disorder [Recovered/Resolved]

NARRATIVE: CASE EVENT DATE: 20221218
